FAERS Safety Report 4806643-5 (Version None)
Quarter: 2005Q4

REPORT INFORMATION
  Report Type: 
  Country: None (occurrence: None)
  Receive Date: 20051019
  Receipt Date: 20051003
  Transmission Date: 20060501
  Serious: Yes (Other)
  Sender: FDA-Public Use
  Company Number: USA0510109803

PATIENT

DRUGS (2)
  1. GEMZAR [Suspect]
     Indication: GALLBLADDER CANCER
  2. GEMZAR [Suspect]
     Indication: METASTASIS

REACTIONS (1)
  - RECALL PHENOMENON [None]
